FAERS Safety Report 10945811 (Version 1)
Quarter: 2015Q1

REPORT INFORMATION
  Report Type: Spontaneous
  Country: FR (occurrence: FR)
  Receive Date: 20150323
  Receipt Date: 20150323
  Transmission Date: 20150721
  Serious: Yes (Life-Threatening)
  Sender: FDA-Public Use
  Company Number: FR-ASTRAZENECA-2015SE25147

PATIENT
  Age: 4291 Day
  Sex: Male
  Weight: 31 kg

DRUGS (1)
  1. XYLOCAINE NAPHAZOLINE [Suspect]
     Active Substance: LIDOCAINE HYDROCHLORIDE\NAPHAZOLINE NITRATE
     Dosage: ONCE/SINGLE ADMINISTRATION
     Route: 045
     Dates: start: 20150216, end: 20150216

REACTIONS (2)
  - Hypertension [Recovered/Resolved]
  - Respiratory depression [Recovered/Resolved]

NARRATIVE: CASE EVENT DATE: 20150216
